FAERS Safety Report 4886986-X (Version None)
Quarter: 2006Q1

REPORT INFORMATION
  Report Type: 
  Country: None (occurrence: None)
  Receive Date: 20060118
  Receipt Date: 20060105
  Transmission Date: 20060701
  Serious: Yes (Hospitalization)
  Sender: FDA-Public Use
  Company Number: 219937

PATIENT
  Age: 68 Year
  Sex: Male
  Weight: 90 kg

DRUGS (7)
  1. AVASTIN [Suspect]
     Indication: COLON CANCER
     Dosage: 5 MG/KG, Q2W, INTRAVENOUS
     Route: 042
     Dates: start: 20041209, end: 20051020
  2. OXALIPLATIN (OXALIPLATIN) [Suspect]
     Indication: COLON CANCER
     Dosage: 85 MG/M2
  3. FLUOROURACIL [Suspect]
     Indication: COLON CANCER
     Dosage: 400 SINGLE, INTRAVENOUS; 2400 MG/M2
     Route: 042
  4. LEUCOVORIN CALCIUM [Suspect]
     Indication: COLON CANCER
     Dosage: 400 MG/M2
  5. VICODIN [Concomitant]
  6. BEXTRA [Concomitant]
  7. PRAVACHOL [Concomitant]

REACTIONS (28)
  - ABDOMINAL DISCOMFORT [None]
  - ASTHENIA [None]
  - BACTEROIDES INFECTION [None]
  - BLOOD CREATININE INCREASED [None]
  - BLOOD CULTURE POSITIVE [None]
  - BLOOD PRESSURE DECREASED [None]
  - BLOOD UREA INCREASED [None]
  - BUTTOCK PAIN [None]
  - CARDIOMEGALY [None]
  - ENTEROCOCCAL SEPSIS [None]
  - ESCHERICHIA INFECTION [None]
  - ISCHAEMIA [None]
  - LUNG INFILTRATION [None]
  - MALAISE [None]
  - METABOLIC ACIDOSIS [None]
  - NECROTISING FASCIITIS [None]
  - OSTEONECROSIS [None]
  - PANNICULITIS [None]
  - PENIS DISORDER [None]
  - PROCTALGIA [None]
  - PROTEIN URINE PRESENT [None]
  - RENAL FAILURE [None]
  - SCROTAL OEDEMA [None]
  - SEPTIC SHOCK [None]
  - SKIN GRAFT [None]
  - SKIN INFLAMMATION [None]
  - TACHYCARDIA [None]
  - TESTICULAR DISORDER [None]
